FAERS Safety Report 22594448 (Version 4)
Quarter: 2023Q4

REPORT INFORMATION
  Report Type: Spontaneous
  Country: US (occurrence: US)
  Receive Date: 20230613
  Receipt Date: 20231212
  Transmission Date: 20240110
  Serious: Yes (Hospitalization, Other)
  Sender: FDA-Public Use
  Company Number: US-BAYER-2023A082044

PATIENT
  Age: 59 Year
  Sex: Male

DRUGS (2)
  1. VITRAKVI [Suspect]
     Active Substance: LAROTRECTINIB
     Indication: Poorly differentiated thyroid carcinoma
     Dosage: 100 MG, BID
     Dates: start: 20230324, end: 20230505
  2. VITRAKVI [Suspect]
     Active Substance: LAROTRECTINIB
     Indication: Poorly differentiated thyroid carcinoma
     Dosage: UNK
     Dates: start: 20230803

REACTIONS (3)
  - Hepatitis [Recovering/Resolving]
  - Abdominal pain [Recovered/Resolved]
  - Jaundice [Recovered/Resolved]

NARRATIVE: CASE EVENT DATE: 20230505
